FAERS Safety Report 18521940 (Version 5)
Quarter: 2020Q4

REPORT INFORMATION
  Report Type: Report from Study
  Country: US (occurrence: US)
  Receive Date: 20201119
  Receipt Date: 20201222
  Transmission Date: 20210114
  Serious: Yes (Other)
  Sender: FDA-Public Use
  Company Number: US-BIOVITRUM-2020US6304

PATIENT
  Age: 3 Month
  Sex: Female

DRUGS (4)
  1. KINERET [Suspect]
     Active Substance: ANAKINRA
     Indication: DISEASE SUSCEPTIBILITY
     Route: 058
     Dates: start: 20201031
  2. PROBIOTIC [Concomitant]
     Active Substance: PROBIOTICS NOS
  3. MULTIVITAMINS [Concomitant]
     Active Substance: VITAMINS
  4. KINERET [Suspect]
     Active Substance: ANAKINRA
     Route: 058
     Dates: start: 20201101

REACTIONS (7)
  - Pyrexia [Unknown]
  - Product dose omission issue [Unknown]
  - Diarrhoea [Unknown]
  - Feeding disorder [Unknown]
  - Off label use [Unknown]
  - COVID-19 [Unknown]
  - Sneezing [Unknown]

NARRATIVE: CASE EVENT DATE: 20201031
